FAERS Safety Report 4413224-4 (Version None)
Quarter: 2004Q3

REPORT INFORMATION
  Report Type: 
  Country: None (occurrence: None)
  Receive Date: 20040730
  Receipt Date: 20040730
  Transmission Date: 20050211
  Serious: No
  Sender: FDA-Public Use
  Company Number: None

PATIENT
  Age: 55 Year
  Sex: Male

DRUGS (1)
  1. HEPARIN [Suspect]
     Indication: CORONARY ARTERY DISEASE

REACTIONS (8)
  - DRUG LEVEL BELOW THERAPEUTIC [None]
  - FAECAL OCCULT BLOOD POSITIVE [None]
  - GASTRIC VARICES [None]
  - GASTRITIS EROSIVE [None]
  - GASTROINTESTINAL HAEMORRHAGE [None]
  - HAEMATOCRIT DECREASED [None]
  - PROTHROMBIN TIME PROLONGED [None]
  - SPLENIC HAEMATOMA [None]
